FAERS Safety Report 24571495 (Version 1)
Quarter: 2024Q4

REPORT INFORMATION
  Report Type: Spontaneous
  Country: US (occurrence: US)
  Receive Date: 20241101
  Receipt Date: 20241101
  Transmission Date: 20250114
  Serious: Yes (Other)
  Sender: HIKMA PHARMACEUTICALS USA INC.
  Company Number: US-HIKMA PHARMACEUTICALS USA INC.-US-H14001-24-09949

PATIENT
  Sex: Male

DRUGS (1)
  1. INFUMORPH [Suspect]
     Active Substance: MORPHINE SULFATE
     Indication: Spinal pain
     Dosage: 1.001 MILLIGRAM
     Route: 037

REACTIONS (3)
  - Tonsil cancer [Unknown]
  - Weight decreased [Unknown]
  - Therapy interrupted [Unknown]
